FAERS Safety Report 6022929-3 (Version None)
Quarter: 2008Q4

REPORT INFORMATION
  Report Type: 
  Country: None (occurrence: None)
  Receive Date: 20081222
  Receipt Date: 20080908
  Transmission Date: 20090506
  Serious: No
  Sender: FDA-Public Use
  Company Number: ALL1-2008-02542

PATIENT
  Age: 46 Year
  Sex: Female
  Weight: 75.7 kg

DRUGS (3)
  1. VYVANSE [Suspect]
     Indication: ATTENTION DEFICIT/HYPERACTIVITY DISORDER
     Dosage: 50 MG, 1X/DAY:QD, ORAL
     Route: 048
     Dates: start: 20080822
  2. WELLBUTRIN [Concomitant]
  3. CELEXA [Concomitant]

REACTIONS (5)
  - ASTHENIA [None]
  - HYPERSOMNIA [None]
  - INSOMNIA [None]
  - MENORRHAGIA [None]
  - WEIGHT INCREASED [None]
